FAERS Safety Report 15151721 (Version 3)
Quarter: 2018Q3

REPORT INFORMATION
  Report Type: Spontaneous
  Country: JP (occurrence: JP)
  Receive Date: 20180716
  Receipt Date: 20180918
  Transmission Date: 20181010
  Serious: Yes (Hospitalization, Other)
  Sender: FDA-Public Use
  Company Number: JP-009507513-1807JPN001477J

PATIENT
  Age: 73 Year
  Sex: Male
  Weight: 70 kg

DRUGS (10)
  1. KEISHIKASHAKUYAKUTO [Concomitant]
     Dosage: 2.5 G, TID
     Route: 048
     Dates: start: 20180117
  2. TELMISARTAN. [Concomitant]
     Active Substance: TELMISARTAN
     Dosage: 40 MG, QD
     Route: 048
     Dates: start: 20180117
  3. DAIKENCHUTO [Concomitant]
     Active Substance: HERBALS
     Dosage: 3 G, TID
     Route: 048
     Dates: start: 20180117
  4. REBAMIPIDE [Concomitant]
     Active Substance: REBAMIPIDE
     Indication: GASTRITIS PROPHYLAXIS
     Dosage: 100 MG, BID
     Route: 048
     Dates: start: 20180117
  5. RANMARK [Concomitant]
     Active Substance: DENOSUMAB
     Indication: METASTASES TO BONE
     Dosage: 120 MG, QD
     Route: 058
     Dates: start: 20180131
  6. KEYTRUDA [Suspect]
     Active Substance: PEMBROLIZUMAB
     Dosage: 200 MG, Q3W
     Route: 041
     Dates: start: 20180725
  7. DENOTAS [Concomitant]
     Active Substance: CALCIUM CARBONATE\CHOLECALCIFEROL\MAGNESIUM CARBONATE
     Indication: PROPHYLAXIS
     Dosage: 2 DF, QD
     Route: 048
     Dates: start: 20180131
  8. AZELNIDIPINE [Concomitant]
     Active Substance: AZELNIDIPINE
     Dosage: 16 MG, QD
     Route: 048
     Dates: start: 20180117
  9. KEYTRUDA [Suspect]
     Active Substance: PEMBROLIZUMAB
     Indication: LUNG ADENOCARCINOMA
     Dosage: 200 MG, UNK
     Route: 041
     Dates: start: 20180117, end: 20180516
  10. LOXOPROFEN [Concomitant]
     Active Substance: LOXOPROFEN
     Dosage: 60 MG, BID
     Route: 048
     Dates: start: 20180117

REACTIONS (6)
  - Lung consolidation [Recovering/Resolving]
  - Stevens-Johnson syndrome [Recovered/Resolved]
  - Hepatic function abnormal [Recovered/Resolved]
  - Dyspnoea [Recovering/Resolving]
  - Renal impairment [Recovered/Resolved]
  - Drug eruption [Recovering/Resolving]

NARRATIVE: CASE EVENT DATE: 201802
